FAERS Safety Report 12842790 (Version 1)
Quarter: 2016Q4

REPORT INFORMATION
  Report Type: Spontaneous
  Country: US (occurrence: US)
  Receive Date: 20161012
  Receipt Date: 20161012
  Transmission Date: 20170207
  Serious: Yes (Hospitalization)
  Sender: FDA-Public Use
  Company Number: None

PATIENT
  Age: 30 Year
  Sex: Male
  Weight: 100 kg

DRUGS (2)
  1. BORTEZOMIB LAST DOSE 9/28/16 4.2 MG [Suspect]
     Active Substance: BORTEZOMIB
     Indication: RENAL CELL CARCINOMA
     Dosage: 1.8 MG/M^2 D1;4;8;11 Q 21 D IV
     Route: 042
     Dates: start: 20120402, end: 20160928
  2. BEVACIZUMAB LAST DOSE 8/31/16 1560 MG [Suspect]
     Active Substance: BEVACIZUMAB
     Indication: RENAL CELL CARCINOMA
     Dosage: 15MG/KG D1 Q 21 DAYS IV
     Route: 042
     Dates: start: 20120402, end: 20160831

REACTIONS (5)
  - Hypoaesthesia [None]
  - Disease progression [None]
  - Spinal cord compression [None]
  - Nervous system disorder [None]
  - Muscular weakness [None]

NARRATIVE: CASE EVENT DATE: 20161011
